FAERS Safety Report 6160884-6 (Version None)
Quarter: 2009Q2

REPORT INFORMATION
  Report Type: 
  Country: None (occurrence: None)
  Receive Date: 20090417
  Receipt Date: 20090417
  Transmission Date: 20091009
  Serious: Yes (Hospitalization)
  Sender: FDA-Public Use
  Company Number: None

PATIENT
  Age: 22 Year
  Sex: Female

DRUGS (1)
  1. SEROQUEL [Suspect]
     Indication: BIPOLAR DISORDER
     Dosage: UNKNOWN O.D. AMOUNT ONCE PO
     Route: 048
     Dates: start: 20090114, end: 20090114

REACTIONS (6)
  - MULTIPLE DRUG OVERDOSE [None]
  - NERVE INJURY [None]
  - PERONEAL NERVE PALSY [None]
  - RESPIRATORY FAILURE [None]
  - RHABDOMYOLYSIS [None]
  - TACHYCARDIA [None]
